FAERS Safety Report 10047335 (Version 1)
Quarter: 2014Q1

REPORT INFORMATION
  Report Type: Spontaneous
  Country: US (occurrence: US)
  Receive Date: 20140331
  Receipt Date: 20140331
  Transmission Date: 20141002
  Serious: No
  Sender: FDA-Public Use
  Company Number: US-MYLANLABS-2014S1002331

PATIENT
  Age: 65 Year
  Sex: Female
  Weight: 103.42 kg

DRUGS (2)
  1. FENTANYL TRANSDERMAL SYSTEM [Suspect]
     Indication: PAIN
     Dosage: CHANGES EVERY 4.5 DAYS
     Route: 062
     Dates: start: 201312
  2. OXYCODONE AND ACETAMINOPHEN [Concomitant]
     Dosage: 10/325MG TABLETS SIX TIMES PER DAY

REACTIONS (3)
  - Withdrawal syndrome [Not Recovered/Not Resolved]
  - Application site rash [Not Recovered/Not Resolved]
  - Incorrect drug administration duration [Not Recovered/Not Resolved]
